FAERS Safety Report 14957495 (Version 4)
Quarter: 2019Q3

REPORT INFORMATION
  Report Type: Spontaneous
  Country: IT (occurrence: IT)
  Receive Date: 20180531
  Receipt Date: 20190809
  Transmission Date: 20191004
  Serious: Yes (Life-Threatening, Other)
  Sender: FDA-Public Use
  Company Number: IT-NOVOPROD-602269

PATIENT
  Age: 50 Year
  Sex: Female

DRUGS (1)
  1. ACTRAPID [Suspect]
     Active Substance: INSULIN HUMAN
     Indication: DIABETES MELLITUS
     Dosage: 8 DF
     Route: 058
     Dates: start: 20180424, end: 20180424

REACTIONS (4)
  - Wheezing [Recovering/Resolving]
  - Hypoglycaemia [Recovering/Resolving]
  - Drug abuse [Unknown]
  - Loss of consciousness [Recovering/Resolving]

NARRATIVE: CASE EVENT DATE: 20180424
